FAERS Safety Report 8840420 (Version 1)
Quarter: 2012Q4

REPORT INFORMATION
  Report Type: 
  Country: US (occurrence: US)
  Receive Date: 20121015
  Receipt Date: 20121015
  Transmission Date: 20130627
  Serious: Yes (Other)
  Sender: FDA-Public Use
  Company Number: US-009507513-2010SP007300

PATIENT

DRUGS (1)
  1. NUVARING [Suspect]
     Indication: CONTRACEPTION
     Dosage: 1 DF, Unknown
     Route: 067
     Dates: start: 200701, end: 200801

REACTIONS (15)
  - Smear cervix abnormal [Recovered/Resolved]
  - Deep vein thrombosis [Not Recovered/Not Resolved]
  - Upper respiratory tract infection [Recovering/Resolving]
  - Haemorrhoids [Not Recovered/Not Resolved]
  - Adjustment disorder with depressed mood [Not Recovered/Not Resolved]
  - Weight decreased [Unknown]
  - Tendonitis [Unknown]
  - Arthralgia [Unknown]
  - Deep vein thrombosis [Unknown]
  - Plantar fasciitis [Unknown]
  - Deep vein thrombosis [Unknown]
  - Deep vein thrombosis [Unknown]
  - Arthralgia [Unknown]
  - Exostosis [Unknown]
  - Onychomycosis [Unknown]
